FAERS Safety Report 9683677 (Version 2)
Quarter: 2013Q4

REPORT INFORMATION
  Report Type: Spontaneous
  Country: GB (occurrence: GB)
  Receive Date: 20131112
  Receipt Date: 20131112
  Transmission Date: 20140711
  Serious: Yes (Other)
  Sender: FDA-Public Use
  Company Number: GB-TEVA-388251ISR

PATIENT
  Age: 83 Year
  Sex: Female

DRUGS (11)
  1. AMLODIPINE [Concomitant]
     Dosage: REGULAR MEDICATION
  2. CARBOCISTEINE [Concomitant]
     Dosage: REGULAR MEDICATION
  3. FUROSEMIDE [Concomitant]
     Dosage: REGULAR MEDICATION
  4. SIMVASTATIN [Suspect]
     Indication: BLOOD CHOLESTEROL INCREASED
     Dosage: 40 MILLIGRAM DAILY;
     Route: 048
  5. FLUVOXAMINE [Suspect]
     Indication: DEPRESSION
     Route: 048
  6. MIRTAZAPINE [Suspect]
     Indication: DEPRESSION
     Dosage: 30 MILLIGRAM DAILY;
     Route: 048
  7. BISOPROLOL [Concomitant]
     Dosage: REGULAR MEDICATION
  8. CLOPIDOGREL [Concomitant]
     Dosage: REGULAR MEDICATION
  9. RAMIPRIL [Concomitant]
     Dosage: REGULAR MEDICATION
  10. ASPIRIN [Concomitant]
     Dosage: REGULAR MEDICATION
  11. LANSOPRAZOLE [Concomitant]
     Dosage: REGULAR MEDICATION

REACTIONS (1)
  - Interstitial lung disease [Recovering/Resolving]
